FAERS Safety Report 9994873 (Version 1)
Quarter: 2014Q1

REPORT INFORMATION
  Report Type: Spontaneous
  Country: US (occurrence: None)
  Receive Date: 20140307
  Receipt Date: 20140307
  Transmission Date: 20141002
  Serious: Yes (Other)
  Sender: FDA-Public Use
  Company Number: None

PATIENT
  Age: 64 Year
  Sex: Male
  Weight: 82.56 kg

DRUGS (1)
  1. ATORVASTATIN CALCIUM [Suspect]
     Dosage: 1  ONCE DAILY TAKEN BY MOUTH
     Route: 048
     Dates: start: 20140217, end: 20140302

REACTIONS (3)
  - Pruritus [None]
  - Myalgia [None]
  - Blood glucose increased [None]
